FAERS Safety Report 7837790-1 (Version None)
Quarter: 2011Q4

REPORT INFORMATION
  Report Type: 
  Country: None (occurrence: None)
  Receive Date: 20111024
  Receipt Date: 20111020
  Transmission Date: 20120403
  Serious: Yes (Death, Hospitalization, Other)
  Sender: FDA-Public Use
  Company Number: PHHY2011US27219

PATIENT
  Sex: Male
  Weight: 93 kg

DRUGS (9)
  1. PROZAC [Concomitant]
     Dosage: 1 DF, UNK
     Route: 048
  2. ROPINIROLE [Concomitant]
     Dosage: UNK UKN, OT
  3. ZOCOR [Concomitant]
     Dosage: UNK UKN, OT
  4. ZOFRAN [Concomitant]
     Dosage: UNK UKN, OT
  5. DICLOFENAC POTASSIUM [Concomitant]
     Dosage: UNK UKN, OT
  6. ARICEPT [Concomitant]
     Dosage: 1 DF, UNK
     Route: 048
  7. COUMADIN [Concomitant]
     Dosage: UNK UKN, OT
  8. SULAR [Concomitant]
     Dosage: UNK UKN, OT
  9. GILENYA [Suspect]
     Indication: RELAPSING-REMITTING MULTIPLE SCLEROSIS
     Dosage: 1 DF, DAILY
     Route: 048
     Dates: start: 20110214, end: 20110301

REACTIONS (24)
  - RESPIRATORY DISTRESS [None]
  - C-REACTIVE PROTEIN INCREASED [None]
  - PLEURAL EFFUSION [None]
  - VOMITING [None]
  - ATELECTASIS [None]
  - PYREXIA [None]
  - INTERNATIONAL NORMALISED RATIO INCREASED [None]
  - ASTHENIA [None]
  - CHILLS [None]
  - DYSPNOEA [None]
  - COUGH [None]
  - DEHYDRATION [None]
  - FAILURE TO THRIVE [None]
  - RESPIRATORY FAILURE [None]
  - MULTIPLE SCLEROSIS [None]
  - PNEUMONIA ASPIRATION [None]
  - HEART RATE INCREASED [None]
  - BLOOD PRESSURE INCREASED [None]
  - BLOOD CREATININE INCREASED [None]
  - BLOOD GLUCOSE INCREASED [None]
  - FATIGUE [None]
  - PNEUMONIA [None]
  - DYSPHAGIA [None]
  - LIVER FUNCTION TEST ABNORMAL [None]
